FAERS Safety Report 13262594 (Version 1)
Quarter: 2017Q1

REPORT INFORMATION
  Report Type: Report from Study
  Country: GB (occurrence: GB)
  Receive Date: 20170223
  Receipt Date: 20170223
  Transmission Date: 20170428
  Serious: Yes (Hospitalization, Other)
  Sender: FDA-Public Use
  Company Number: GB-AMGEN-GBRSL2017009742

PATIENT
  Age: 82 Year
  Sex: Female

DRUGS (2)
  1. ADCAL [Concomitant]
     Active Substance: CALCIUM CARBONATE
  2. PROLIA [Suspect]
     Active Substance: DENOSUMAB
     Indication: OSTEOPOROSIS
     Dosage: UNK, Q6MO
     Route: 065
     Dates: start: 2011

REACTIONS (11)
  - Mobility decreased [Unknown]
  - Arthritis [Unknown]
  - Arterial disorder [Unknown]
  - Limb discomfort [Unknown]
  - Cellulitis [Unknown]
  - Gait disturbance [Unknown]
  - Musculoskeletal disorder [Unknown]
  - Peripheral swelling [Unknown]
  - Arthralgia [Unknown]
  - Pain in extremity [Unknown]
  - Insomnia [Unknown]
